FAERS Safety Report 19751060 (Version 3)
Quarter: 2021Q4

REPORT INFORMATION
  Report Type: Report from Study
  Country: US (occurrence: US)
  Receive Date: 20210826
  Receipt Date: 20211013
  Transmission Date: 20220303
  Serious: Yes (Other)
  Sender: FDA-Public Use
  Company Number: US-TEVA-2021-US-1945173

PATIENT
  Age: 21 Year
  Sex: Female

DRUGS (4)
  1. CLARAVIS [Suspect]
     Active Substance: ISOTRETINOIN
  2. CLARAVIS [Suspect]
     Active Substance: ISOTRETINOIN
  3. CLARAVIS [Suspect]
     Active Substance: ISOTRETINOIN
  4. CLARAVIS [Suspect]
     Active Substance: ISOTRETINOIN
     Dosage: 40+20
     Route: 048
     Dates: start: 20210416, end: 20210714

REACTIONS (2)
  - Unintended pregnancy [Unknown]
  - Treatment noncompliance [Unknown]

NARRATIVE: CASE EVENT DATE: 20210101
